FAERS Safety Report 13547504 (Version 1)
Quarter: 2017Q2

REPORT INFORMATION
  Report Type: Spontaneous
  Country: US (occurrence: US)
  Receive Date: 20170515
  Receipt Date: 20170515
  Transmission Date: 20170830
  Serious: Yes (Hospitalization)
  Sender: FDA-Public Use
  Company Number: US-VIFOR (INTERNATIONAL) INC.-VIT-2017-05271

PATIENT
  Age: 74 Year
  Sex: Male

DRUGS (26)
  1. VELTASSA [Suspect]
     Active Substance: PATIROMER
     Indication: HYPERKALAEMIA
     Route: 048
     Dates: start: 20160930
  2. HYDROXYCHLOROQUINE SULFATE. [Concomitant]
     Active Substance: HYDROXYCHLOROQUINE SULFATE
  3. GLUCOSAMINE CHONDR 1500 COMPLX [Concomitant]
  4. SYSTANE (HYPROMELLOSE 2910 (4000 MPA.S)) [Concomitant]
     Active Substance: HYPROMELLOSE 2910 (4000 MPA.S)
  5. OMEPRAZOLE. [Concomitant]
     Active Substance: OMEPRAZOLE
  6. CLOBETASOL PROPIONATE. [Concomitant]
     Active Substance: CLOBETASOL PROPIONATE
  7. COLECALCIFEROL [Concomitant]
     Active Substance: CHOLECALCIFEROL
  8. B6 [Concomitant]
     Active Substance: PYRIDOXINE HYDROCHLORIDE
  9. ACETYLSALICYLIC ACID [Concomitant]
     Active Substance: ASPIRIN
  10. SODIUM BICARBONATE. [Concomitant]
     Active Substance: SODIUM BICARBONATE
  11. ERGOCALCIFEROL. [Concomitant]
     Active Substance: ERGOCALCIFEROL
  12. MIRALAX [Concomitant]
     Active Substance: POLYETHYLENE GLYCOL 3350
  13. FUROSEMIDE. [Concomitant]
     Active Substance: FUROSEMIDE
  14. ETHAMBUTOL DIHYDROCHLORIDE [Concomitant]
     Active Substance: ETHAMBUTOL HYDROCHLORIDE
  15. CLONIDINE HYDROCHLORIDE. [Concomitant]
     Active Substance: CLONIDINE HYDROCHLORIDE
  16. RIFAMPIN. [Concomitant]
     Active Substance: RIFAMPIN
  17. FLONASE ALLERGY RELIEF [Concomitant]
     Active Substance: FLUTICASONE PROPIONATE
  18. FENOFIBRATE. [Concomitant]
     Active Substance: FENOFIBRATE
  19. FAMOTIDINE. [Concomitant]
     Active Substance: FAMOTIDINE
  20. HYDROCHLOROTHIAZIDE/VALSARTAN [Concomitant]
  21. PYRAZINAMIDE. [Concomitant]
     Active Substance: PYRAZINAMIDE
  22. ISONIAZID. [Concomitant]
     Active Substance: ISONIAZID
  23. IRON [Concomitant]
     Active Substance: IRON
  24. FERROUS FUMARATE [Concomitant]
     Active Substance: FERROUS FUMARATE
  25. AMLODIPINE BESILATE [Concomitant]
     Active Substance: AMLODIPINE BESYLATE
  26. HYDRALAZINE HYDROCHLORIDE. [Concomitant]
     Active Substance: HYDRALAZINE HYDROCHLORIDE

REACTIONS (1)
  - Cough [Unknown]

NARRATIVE: CASE EVENT DATE: 20170418
